FAERS Safety Report 16336824 (Version 1)
Quarter: 2019Q2

REPORT INFORMATION
  Report Type: Spontaneous
  Country: DE (occurrence: DE)
  Receive Date: 20190521
  Receipt Date: 20190521
  Transmission Date: 20190711
  Serious: Yes (Death, Life-Threatening, Other)
  Sender: FDA-Public Use
  Company Number: DE-TORRENT-00014043

PATIENT
  Age: 67 Year
  Sex: Female

DRUGS (2)
  1. CLOPIDOGREL [Suspect]
     Active Substance: CLOPIDOGREL BISULFATE
     Indication: ANEURYSM
  2. ACETYLSALICYLIC ACID [Suspect]
     Active Substance: ASPIRIN
     Indication: ISCHAEMIA

REACTIONS (5)
  - Hemiparesis [Unknown]
  - Subarachnoid haemorrhage [Unknown]
  - Gaze palsy [Unknown]
  - Amnestic disorder [Unknown]
  - Drug ineffective [Fatal]
